FAERS Safety Report 6680283-8 (Version None)
Quarter: 2010Q2

REPORT INFORMATION
  Report Type: 
  Country: None (occurrence: None)
  Receive Date: 20100413
  Receipt Date: 20100412
  Transmission Date: 20101027
  Serious: Yes (Other)
  Sender: FDA-Public Use
  Company Number: IT-MERCK-1003ITA00045

PATIENT
  Age: 28 Year
  Sex: Male

DRUGS (1)
  1. PROPECIA [Suspect]
     Indication: ANDROGENETIC ALOPECIA
     Route: 048
     Dates: start: 20091101, end: 20091101

REACTIONS (6)
  - DEPRESSION [None]
  - ERECTILE DYSFUNCTION [None]
  - MALE SEXUAL DYSFUNCTION [None]
  - MUSCLE SPASMS [None]
  - PSYCHOSEXUAL DISORDER [None]
  - SPEECH DISORDER [None]
